FAERS Safety Report 18005974 (Version 3)
Quarter: 2020Q4

REPORT INFORMATION
  Report Type: Report from Study
  Country: CO (occurrence: CO)
  Receive Date: 20200710
  Receipt Date: 20201218
  Transmission Date: 20210113
  Serious: Yes (Hospitalization)
  Sender: FDA-Public Use
  Company Number: CO-ASTELLAS-2019US015832

PATIENT
  Age: 15 Year
  Sex: Male
  Weight: 51 kg

DRUGS (11)
  1. TACROLIMUS. [Suspect]
     Active Substance: TACROLIMUS
     Dosage: 3 MG, ONCE DAILY (3 MG, EVERY 24 HRS)
     Route: 048
     Dates: start: 20201122, end: 20201125
  2. TACROLIMUS. [Suspect]
     Active Substance: TACROLIMUS
     Route: 048
  3. DEFLAZACORT [Concomitant]
     Active Substance: DEFLAZACORT
     Indication: TRANSPLANT
     Route: 048
     Dates: start: 20140621
  4. TACROLIMUS. [Suspect]
     Active Substance: TACROLIMUS
     Route: 048
     Dates: start: 20201201
  5. ESOMEPRAZOLE. [Suspect]
     Active Substance: ESOMEPRAZOLE MAGNESIUM
     Indication: PRODUCT USED FOR UNKNOWN INDICATION
     Dosage: UNK UNK, ONCE DAILY
     Route: 065
  6. VITAMIN D [COLECALCIFEROL] [Concomitant]
     Active Substance: CHOLECALCIFEROL
     Indication: PRODUCT USED FOR UNKNOWN INDICATION
     Dosage: UNK UNK, UNKNOWN FREQ. (IN MORNING AND IN THE NIGHT)
     Route: 065
  7. MYCOPHENOLATE [Concomitant]
     Active Substance: MYCOPHENOLIC ACID
     Dosage: 250 MG, UNKNOWN FREQ. (3 CAPSULES IN MORNING AND 2 CAPSULES IN NIGHT)
     Route: 048
  8. DEZACOR [Concomitant]
     Active Substance: DEFLAZACORT
     Indication: PRODUCT USED FOR UNKNOWN INDICATION
     Dosage: 1 MG, ONCE DAILY (1 EVERY 24 HOURS)
     Route: 065
  9. TACROLIMUS. [Suspect]
     Active Substance: TACROLIMUS
     Route: 048
     Dates: start: 20140621, end: 20201120
  10. MYCOPHENOLATE [Concomitant]
     Active Substance: MYCOPHENOLIC ACID
     Indication: TRANSPLANT
     Route: 048
     Dates: start: 20140621
  11. TACROLIMUS. [Suspect]
     Active Substance: TACROLIMUS
     Indication: RENAL TRANSPLANT
     Route: 048

REACTIONS (7)
  - Abdominal pain upper [Recovered/Resolved]
  - Immunosuppressant drug level increased [Not Recovered/Not Resolved]
  - Diarrhoea [Recovered/Resolved]
  - Oropharyngeal pain [Recovered/Resolved]
  - Gastritis [Recovered/Resolved]
  - Bone pain [Recovered/Resolved]
  - Weight increased [Not Recovered/Not Resolved]

NARRATIVE: CASE EVENT DATE: 20190304
